FAERS Safety Report 7269292-8 (Version None)
Quarter: 2011Q1

REPORT INFORMATION
  Report Type: 
  Country: None (occurrence: None)
  Receive Date: 20110202
  Receipt Date: 20110125
  Transmission Date: 20110831
  Serious: Yes (Other)
  Sender: FDA-Public Use
  Company Number: US-US-EMD SERONO, INC.-7002856

PATIENT
  Sex: Female

DRUGS (3)
  1. REBIF [Suspect]
     Indication: MULTIPLE SCLEROSIS
     Route: 058
     Dates: start: 20091120
  2. REBIF [Suspect]
     Route: 058
  3. REBIF [Suspect]
     Route: 058
     Dates: end: 20100901

REACTIONS (6)
  - INJECTION SITE ERYTHEMA [None]
  - INFLUENZA LIKE ILLNESS [None]
  - MULTIPLE SCLEROSIS RELAPSE [None]
  - INJECTION SITE INFECTION [None]
  - STAPHYLOCOCCAL INFECTION [None]
  - CRYING [None]
